FAERS Safety Report 5957323-4 (Version None)
Quarter: 2008Q4

REPORT INFORMATION
  Report Type: 
  Country: None (occurrence: None)
  Receive Date: 20081118
  Receipt Date: 20081117
  Transmission Date: 20090506
  Serious: Yes (Hospitalization)
  Sender: FDA-Public Use
  Company Number: US-ROXANE LABORATORIES, INC.-2008-RO-00209RO

PATIENT
  Sex: Female
  Weight: 61 kg

DRUGS (1)
  1. BALSALAZIDE DISODIUM [Suspect]
     Indication: CROHN'S DISEASE
     Dosage: 6750MG
     Dates: start: 20080301

REACTIONS (3)
  - CROHN'S DISEASE [None]
  - DRUG INEFFECTIVE [None]
  - HOSPITALISATION [None]
